FAERS Safety Report 15239425 (Version 1)
Quarter: 2018Q3

REPORT INFORMATION
  Report Type: Spontaneous
  Country: DE (occurrence: DE)
  Receive Date: 20180803
  Receipt Date: 20180803
  Transmission Date: 20181010
  Serious: Yes (Congenital Anomaly, Other)
  Sender: FDA-Public Use
  Company Number: PHHY2018DE061726

PATIENT
  Age: 1 Day
  Sex: Male
  Weight: 3.62 kg

DRUGS (2)
  1. INSULIN HUMAN [Concomitant]
     Active Substance: INSULIN HUMAN
     Indication: TYPE 2 DIABETES MELLITUS
     Route: 064
  2. OLANZAPINE. [Suspect]
     Active Substance: OLANZAPINE
     Indication: SCHIZOPHRENIA
     Dosage: 300 MG, QD (PER DAY)
     Route: 064

REACTIONS (7)
  - Neonatal hypoxia [Recovered/Resolved]
  - Hypotonia neonatal [Recovered/Resolved]
  - Selective eating disorder [Recovered/Resolved]
  - Atrial septal defect [Unknown]
  - Ventricular septal defect [Unknown]
  - Eye movement disorder [Recovered/Resolved]
  - Cardiac septal hypertrophy [Unknown]

NARRATIVE: CASE EVENT DATE: 20171208
